FAERS Safety Report 10396067 (Version 1)
Quarter: 2014Q3

REPORT INFORMATION
  Report Type: Report from Study
  Country: IL (occurrence: IL)
  Receive Date: 20140820
  Receipt Date: 20140820
  Transmission Date: 20150326
  Serious: Yes (Disabling)
  Sender: FDA-Public Use
  Company Number: IL-SA-2014SA111857

PATIENT
  Sex: Male

DRUGS (2)
  1. APIDRA [Suspect]
     Active Substance: INSULIN GLULISINE
     Indication: PRODUCT USED FOR UNKNOWN INDICATION
     Dosage: DOSE:12 UNIT(S)
     Route: 065
  2. LANTUS [Suspect]
     Active Substance: INSULIN GLARGINE
     Indication: PRODUCT USED FOR UNKNOWN INDICATION
     Dosage: DOSE:48 UNIT(S)
     Route: 065

REACTIONS (5)
  - Expired product administered [Unknown]
  - Wrong technique in drug usage process [Unknown]
  - Finger amputation [Unknown]
  - Drug dose omission [Unknown]
  - Blood glucose abnormal [Not Recovered/Not Resolved]
